FAERS Safety Report 18599798 (Version 6)
Quarter: 2023Q1

REPORT INFORMATION
  Report Type: Spontaneous
  Country: US (occurrence: US)
  Receive Date: 20201210
  Receipt Date: 20230307
  Transmission Date: 20230418
  Serious: No
  Sender: FDA-Public Use
  Company Number: US-PFIZER INC-2020483222

PATIENT
  Age: 65 Year
  Sex: Female
  Weight: 73.94 kg

DRUGS (2)
  1. IBRANCE [Suspect]
     Active Substance: PALBOCICLIB
     Indication: Breast cancer metastatic
     Dosage: 125 MG, CYCLIC (ONE TABLET DAILY BY MOUTH FOR 3 WEEK AND THEN 1 WEEK OFF)
     Route: 048
     Dates: start: 20201026
  2. IBRANCE [Suspect]
     Active Substance: PALBOCICLIB
     Dosage: 100 MG

REACTIONS (2)
  - White blood cell count decreased [Unknown]
  - Product prescribing error [Unknown]
